FAERS Safety Report 12114513 (Version 1)
Quarter: 2016Q1

REPORT INFORMATION
  Report Type: Report from Study
  Country: NL (occurrence: NL)
  Receive Date: 20160225
  Receipt Date: 20160225
  Transmission Date: 20160526
  Serious: Yes (Hospitalization, Other)
  Sender: FDA-Public Use
  Company Number: NL-EMD SERONO-7216683

PATIENT
  Age: 52 Year
  Sex: Female
  Weight: 125 kg

DRUGS (9)
  1. PARACETAMOL [Concomitant]
     Active Substance: ACETAMINOPHEN
     Indication: PRODUCT USED FOR UNKNOWN INDICATION
     Dates: start: 20120620
  2. OMEPRAZOL                          /00661201/ [Concomitant]
     Active Substance: OMEPRAZOLE
     Indication: GASTROINTESTINAL DISORDER
     Route: 048
     Dates: start: 2011
  3. PARACETAMOL W/TRAMADOL [Concomitant]
     Indication: PAIN
     Dosage: 325 MG/ 37.5 , AS REQUIRED
     Route: 048
  4. METOPROLOL. [Concomitant]
     Active Substance: METOPROLOL
     Indication: HYPERTENSION
     Route: 048
  5. REBIF [Suspect]
     Active Substance: INTERFERON BETA-1A
     Route: 058
  6. BACLOFEN. [Concomitant]
     Active Substance: BACLOFEN
     Indication: HYPOTONIA
     Route: 048
     Dates: start: 2011
  7. PARACETAMOL [Concomitant]
     Active Substance: ACETAMINOPHEN
  8. REBIF [Suspect]
     Active Substance: INTERFERON BETA-1A
     Indication: MULTIPLE SCLEROSIS
     Route: 058
     Dates: start: 20120521
  9. HYDROXOCOBALAMIN [Concomitant]
     Active Substance: HYDROXOCOBALAMIN
     Indication: VITAMIN B12 DEFICIENCY
     Dosage: 500MCG/ML PER AMP. 2 ML
     Route: 058
     Dates: start: 2008

REACTIONS (3)
  - Multiple sclerosis relapse [Unknown]
  - Erysipelas [Unknown]
  - Nephrolithiasis [Unknown]

NARRATIVE: CASE EVENT DATE: 201304
